FAERS Safety Report 7773788-X (Version None)
Quarter: 2011Q3

REPORT INFORMATION
  Report Type: 
  Country: None (occurrence: None)
  Receive Date: 20110923
  Receipt Date: 20110921
  Transmission Date: 20111222
  Serious: Yes (Death, Hospitalization)
  Sender: FDA-Public Use
  Company Number: US-BRISTOL-MYERS SQUIBB COMPANY-16081432

PATIENT
  Sex: Male

DRUGS (1)
  1. YERVOY [Suspect]
     Dosage: RECEIVED TWO DOSES

REACTIONS (4)
  - DEATH [None]
  - EJECTION FRACTION DECREASED [None]
  - RENAL FAILURE [None]
  - HEPATIC FAILURE [None]
